FAERS Safety Report 7635127-4 (Version None)
Quarter: 2011Q3

REPORT INFORMATION
  Report Type: 
  Country: None (occurrence: None)
  Receive Date: 20110726
  Receipt Date: 20110708
  Transmission Date: 20111222
  Serious: Yes (Hospitalization, Other)
  Sender: FDA-Public Use
  Company Number: PHHY2011US63287

PATIENT
  Sex: Female

DRUGS (4)
  1. ANTIHYPERTENSIVE DRUGS [Concomitant]
  2. HYDRALAZINE HCL [Concomitant]
  3. BYSTOLIC [Concomitant]
  4. TEKTURNA [Suspect]

REACTIONS (3)
  - CEREBROVASCULAR ACCIDENT [None]
  - HYPOAESTHESIA [None]
  - BLOOD PRESSURE SYSTOLIC INCREASED [None]
